FAERS Safety Report 9431941 (Version 2)
Quarter: 2016Q1

REPORT INFORMATION
  Report Type: Spontaneous
  Country: RO (occurrence: RO)
  Receive Date: 20130731
  Receipt Date: 20160307
  Transmission Date: 20160526
  Serious: Yes (Life-Threatening, Other)
  Sender: FDA-Public Use
  Company Number: RO-BRISTOL-MYERS SQUIBB COMPANY-19153048

PATIENT
  Sex: Female

DRUGS (3)
  1. CARBOPLATIN. [Interacting]
     Active Substance: CARBOPLATIN
     Indication: BREAST CANCER METASTATIC
     Route: 065
  2. HYDREA [Suspect]
     Active Substance: HYDROXYUREA
     Indication: POLYCYTHAEMIA VERA
     Route: 065
  3. PACLITAXEL. [Interacting]
     Active Substance: PACLITAXEL
     Indication: BREAST CANCER METASTATIC
     Route: 065

REACTIONS (4)
  - Atrial fibrillation [Unknown]
  - Product use issue [Unknown]
  - Drug interaction [Unknown]
  - Respiratory failure [Unknown]
